FAERS Safety Report 13905402 (Version 1)
Quarter: 2017Q3

REPORT INFORMATION
  Report Type: Spontaneous
  Country: US (occurrence: US)
  Receive Date: 20170825
  Receipt Date: 20170825
  Transmission Date: 20171127
  Serious: No
  Sender: FDA-Public Use
  Company Number: US-TEVA-732081ACC

PATIENT
  Sex: Male

DRUGS (1)
  1. ACTAVIS ALENDRONATE SODIUM [Suspect]
     Active Substance: ALENDRONATE SODIUM
     Dates: start: 20170116, end: 20170117

REACTIONS (3)
  - Headache [Recovered/Resolved]
  - Arthralgia [Recovered/Resolved]
  - Abdominal pain upper [Recovered/Resolved]

NARRATIVE: CASE EVENT DATE: 20170116
